FAERS Safety Report 7464770-0 (Version None)
Quarter: 2011Q2

REPORT INFORMATION
  Report Type: 
  Country: None (occurrence: None)
  Receive Date: 20110509
  Receipt Date: 20110411
  Transmission Date: 20111010
  Serious: Yes (Other)
  Sender: FDA-Public Use
  Company Number: US-BAYER-201020233NA

PATIENT
  Sex: Female

DRUGS (3)
  1. YASMIN [Suspect]
     Indication: CONTRACEPTION
     Dosage: UNK
     Dates: start: 20030811
  2. YAZ [Suspect]
  3. YASMIN [Suspect]
     Dosage: UNK
     Dates: start: 20090324

REACTIONS (1)
  - CHOLELITHIASIS [None]
